FAERS Safety Report 25548225 (Version 1)
Quarter: 2025Q3

REPORT INFORMATION
  Report Type: Spontaneous
  Country: EU (occurrence: EU)
  Receive Date: 20250714
  Receipt Date: 20250714
  Transmission Date: 20251021
  Serious: Yes (Other)
  Sender: ACCORD
  Company Number: None

PATIENT
  Age: 67 Year
  Sex: Female

DRUGS (13)
  1. ETOPOSIDE [Suspect]
     Active Substance: ETOPOSIDE
     Indication: Bone marrow conditioning regimen
     Dates: start: 202012, end: 202012
  2. CYTARABINE [Suspect]
     Active Substance: CYTARABINE
     Indication: Product used for unknown indication
     Dates: start: 202012, end: 202012
  3. DOXORUBICIN HYDROCHLORIDE [Suspect]
     Active Substance: DOXORUBICIN HYDROCHLORIDE
     Indication: Follicular lymphoma
     Dates: start: 201811, end: 2019
  4. OXALIPLATIN [Suspect]
     Active Substance: OXALIPLATIN
     Indication: Follicular lymphoma recurrent
     Dates: start: 202010, end: 202011
  5. DEXAMETHASONE [Concomitant]
     Active Substance: DEXAMETHASONE
     Dates: start: 202010, end: 202011
  6. TISAGENLECLEUCEL [Suspect]
     Active Substance: TISAGENLECLEUCEL
     Indication: Diffuse large B-cell lymphoma
     Dates: start: 20220412, end: 20220412
  7. CARMUSTINE [Suspect]
     Active Substance: CARMUSTINE
     Indication: Bone marrow conditioning regimen
     Dates: start: 202012, end: 2020
  8. MELPHALAN [Suspect]
     Active Substance: MELPHALAN
     Indication: Bone marrow conditioning regimen
     Dates: start: 202012, end: 202012
  9. CYCLOPHOSPHAMIDE [Suspect]
     Active Substance: CYCLOPHOSPHAMIDE
     Indication: Follicular lymphoma
     Dates: start: 201811, end: 202011
  10. VINCRISTINE SULFATE [Suspect]
     Active Substance: VINCRISTINE SULFATE
     Indication: Follicular lymphoma
     Dates: start: 201811, end: 202011
  11. RITUXIMAB [Suspect]
     Active Substance: RITUXIMAB
     Indication: Follicular lymphoma
     Dates: start: 201811, end: 202011
  12. PREDNISONE [Concomitant]
     Active Substance: PREDNISONE
     Dates: start: 201811, end: 202010
  13. CYTARABINE [Suspect]
     Active Substance: CYTARABINE
     Indication: Follicular lymphoma recurrent
     Dates: start: 202010, end: 202011

REACTIONS (1)
  - Myelodysplastic syndrome [Not Recovered/Not Resolved]

NARRATIVE: CASE EVENT DATE: 20240521
